FAERS Safety Report 21064630 (Version 1)
Quarter: 2022Q3

REPORT INFORMATION
  Report Type: Report from Study
  Country: CZ (occurrence: CZ)
  Receive Date: 20220711
  Receipt Date: 20220711
  Transmission Date: 20221027
  Serious: Yes (Other)
  Sender: FDA-Public Use
  Company Number: CZ-PFIZER INC-2021045579

PATIENT
  Age: 32 Year
  Sex: Male
  Weight: 74.6 kg

DRUGS (13)
  1. ABROCITINIB [Suspect]
     Active Substance: ABROCITINIB
     Indication: Dermatitis atopic
     Dosage: 200 MG, DAILY
     Route: 048
     Dates: start: 20191025, end: 20210119
  2. XYZAL [Concomitant]
     Active Substance: LEVOCETIRIZINE DIHYDROCHLORIDE
     Indication: Hypersensitivity
     Dosage: 5 MG, 1X/DAY, 0-0-1
     Route: 048
     Dates: start: 2017
  3. TAMALIS [Concomitant]
     Indication: Hypersensitivity
     Dosage: 10 MG, 1X/DAY, 0-0-1
     Route: 048
     Dates: start: 2017
  4. MONTELUKAST [Concomitant]
     Active Substance: MONTELUKAST SODIUM
     Indication: Asthma
     Dosage: 10 MG, 1X/DAY, 1-0-0
     Route: 048
     Dates: start: 2013
  5. MONTELUKAST [Concomitant]
     Active Substance: MONTELUKAST SODIUM
     Indication: Bronchitis
  6. SYMBICORT [Concomitant]
     Active Substance: BUDESONIDE\FORMOTEROL FUMARATE DIHYDRATE
     Indication: Asthma
     Dosage: 2X/DAY, 1-0-1
     Route: 055
     Dates: start: 2013
  7. SYMBICORT [Concomitant]
     Active Substance: BUDESONIDE\FORMOTEROL FUMARATE DIHYDRATE
     Indication: Bronchitis
  8. VENTOLIN [Concomitant]
     Active Substance: ALBUTEROL SULFATE
     Indication: Asthma
     Dosage: 100 UG, AS NEEDED
     Route: 055
     Dates: start: 2013
  9. VENTOLIN [Concomitant]
     Active Substance: ALBUTEROL SULFATE
     Indication: Bronchitis
  10. ELOCON [Concomitant]
     Active Substance: MOMETASONE FUROATE
     Indication: Dermatitis atopic
     Dosage: 0.1 %,  3X WEEK
     Route: 061
     Dates: start: 20200412
  11. AFLODERM [Concomitant]
     Indication: Dermatitis atopic
     Dosage: 0.5 MG/G, 2X/WEEK
     Route: 061
     Dates: start: 20200511
  12. OLIVE OIL [Concomitant]
     Active Substance: OLIVE OIL
     Indication: Dermatitis atopic
     Dosage: 2X/DAY, 1-0-1
     Route: 061
     Dates: start: 2018
  13. OLOPATADINE [Concomitant]
     Active Substance: OLOPATADINE
     Indication: Ocular hyperaemia
     Dosage: E(EYE), 1 ML/1 MG, 2X/DAY, 1-0-1
     Route: 047
     Dates: start: 20201105

REACTIONS (1)
  - Ulcerative keratitis [Not Recovered/Not Resolved]

NARRATIVE: CASE EVENT DATE: 20210118
